APPROVED DRUG PRODUCT: LITHIUM CARBONATE
Active Ingredient: LITHIUM CARBONATE
Strength: 300MG
Dosage Form/Route: TABLET;ORAL
Application: N016834 | Product #001
Applicant: PFIZER INC
Approved: Approved Prior to Jan 1, 1982 | RLD: No | RS: No | Type: DISCN